FAERS Safety Report 15222136 (Version 1)
Quarter: 2018Q4

REPORT INFORMATION
  Report Type: Spontaneous
  Country: US (occurrence: US)
  Receive Date: 20180731
  Receipt Date: 20180731
  Transmission Date: 20190204
  Serious: No
  Sender: FDA-Public Use
  Company Number: US-MCGUFF PHARMACEUTICALS, INC.-2053026

PATIENT
  Age: 74 Year
  Sex: Female
  Weight: 77.73 kg

DRUGS (12)
  1. MAGNESIUM CHLORIDE. [Concomitant]
     Active Substance: MAGNESIUM CHLORIDE
     Route: 041
     Dates: start: 20180611, end: 20180611
  2. PYRIDOXINE [Concomitant]
     Active Substance: PYRIDOXINE
     Route: 041
     Dates: start: 20180611, end: 20180611
  3. METHYLCOBALAMIN. [Concomitant]
     Active Substance: METHYLCOBALAMIN
     Route: 041
     Dates: start: 20180611, end: 20180611
  4. STERILE WATER [Concomitant]
     Active Substance: WATER
     Route: 041
     Dates: start: 20180611, end: 20180611
  5. ASCOR [Suspect]
     Active Substance: ASCORBIC ACID
     Route: 041
     Dates: start: 20180611, end: 20180611
  6. VITAMIN B-COMPLEX [Concomitant]
     Active Substance: DEXPANTHENOL\NIACINAMIDE\PYRIDOXINE HYDROCHLORIDE\RIBOFLAVIN 5^-PHOSPHATE SODIUM\THIAMINE HYDROCHLORIDE
     Route: 041
     Dates: start: 20180611, end: 20180611
  7. CHROMIUM [Concomitant]
     Active Substance: CHROMIC CHLORIDE\CHROMIUM
     Route: 041
     Dates: start: 20180611, end: 20180611
  8. FOLIC ACID. [Concomitant]
     Active Substance: FOLIC ACID
     Route: 041
     Dates: start: 20180611, end: 20180611
  9. POTASSIUM CHLORIDE. [Concomitant]
     Active Substance: POTASSIUM CHLORIDE
     Route: 041
     Dates: start: 20180611, end: 20180611
  10. CALCIUM GLUCONATE 10% [Concomitant]
     Active Substance: CALCIUM GLUCONATE
     Route: 041
     Dates: start: 20180611, end: 20180611
  11. SODIUM BICARBONATE 8.4% [Concomitant]
     Active Substance: SODIUM BICARBONATE
     Route: 041
     Dates: start: 20180611, end: 20180611
  12. DEXPANTHENOL. [Concomitant]
     Active Substance: DEXPANTHENOL
     Route: 041
     Dates: start: 20180611, end: 20180611

REACTIONS (4)
  - Pyrexia [Recovered/Resolved]
  - Chills [Recovered/Resolved]
  - Pain [Recovered/Resolved]
  - Nausea [Recovered/Resolved]

NARRATIVE: CASE EVENT DATE: 20180611
